FAERS Safety Report 9564718 (Version 1)
Quarter: 2013Q3

REPORT INFORMATION
  Report Type: Spontaneous
  Country: US (occurrence: US)
  Receive Date: 20130930
  Receipt Date: 20130930
  Transmission Date: 20140515
  Serious: No
  Sender: FDA-Public Use
  Company Number: US-PFIZER INC-2013279378

PATIENT
  Age: 64 Year
  Sex: Female
  Weight: 58.96 kg

DRUGS (3)
  1. PRISTIQ [Suspect]
     Indication: DEPRESSION
     Dosage: 50 MG, DAILY
     Dates: start: 201108
  2. HYDROMORPHONE [Concomitant]
     Dosage: UNK, AS NEEDED
  3. METHADONE HYDROCHLORIDE [Concomitant]
     Dosage: 10 MG, 2X/DAY

REACTIONS (2)
  - Anxiety [Unknown]
  - Stress [Unknown]
